FAERS Safety Report 9837234 (Version 1)
Quarter: 2013Q4

REPORT INFORMATION
  Report Type: Spontaneous
  Country: US (occurrence: None)
  Receive Date: 20131205
  Receipt Date: 20131205
  Transmission Date: 20140711
  Serious: Yes (Other)
  Sender: FDA-Public Use
  Company Number: 163-POMAL-13101163

PATIENT
  Age: 81 Year
  Sex: Female

DRUGS (13)
  1. POMALYST (POMALIDOMIDE) (4 MILLIGRAM, CAPSULES) [Suspect]
     Indication: PLASMA CELL MYELOMA
     Dosage: 4 MG, 1 IN 1 D, PO
     Route: 048
     Dates: start: 201305
  2. PRAVACHOL (PRAVASTATIN SODIUM) [Concomitant]
  3. LEVOTHYROXINE (LEVOTHYROXINE) [Concomitant]
  4. TOPROL (METOPROLOL SUCCINATE) [Concomitant]
  5. LASIX (FUROSEMIDE) [Concomitant]
  6. PAROXETINE (PAROXETINE) [Concomitant]
  7. VITAMIN D (ERGOCALCIFEROL) [Concomitant]
  8. NORVASC (AMLODIPINE BESILATE) [Concomitant]
  9. NEURONTIN (GABAPENTIN) [Concomitant]
  10. KCL (POTASSIUM CHLORIDE) [Concomitant]
  11. MAG OX (MAGNESIUM OXIDE) [Concomitant]
  12. OXYCODONE (OXYCODONE) [Concomitant]
  13. APAP (PARACETAMOL) [Concomitant]

REACTIONS (2)
  - Anaemia [None]
  - Tremor [None]
